FAERS Safety Report 16864449 (Version 3)
Quarter: 2019Q4

REPORT INFORMATION
  Report Type: Report from Study
  Country: US (occurrence: US)
  Receive Date: 20190928
  Receipt Date: 20191029
  Transmission Date: 20200122
  Serious: Yes (Other)
  Sender: FDA-Public Use
  Company Number: US-ALEXION PHARMACEUTICALS INC.-A201914542

PATIENT
  Sex: Female

DRUGS (4)
  1. ATORVASTATIN [Concomitant]
     Active Substance: ATORVASTATIN
     Indication: PROPHYLAXIS
     Dosage: 20 MG, QHS
     Route: 065
  2. METOPROLOL. [Concomitant]
     Active Substance: METOPROLOL
     Indication: PRODUCT USED FOR UNKNOWN INDICATION
     Dosage: 25 MG, QD
     Route: 065
  3. ASPIRIN                            /00002701/ [Concomitant]
     Active Substance: ASPIRIN
     Indication: PROPHYLAXIS
  4. SOLIRIS [Suspect]
     Active Substance: ECULIZUMAB
     Indication: ATYPICAL HAEMOLYTIC URAEMIC SYNDROME
     Dosage: UNK
     Route: 065

REACTIONS (15)
  - Weight increased [Unknown]
  - Hypertension [Unknown]
  - Gastrointestinal disorder [Unknown]
  - Arthralgia [Unknown]
  - Tachycardia [Unknown]
  - Fatigue [Unknown]
  - Migraine [Unknown]
  - Exercise tolerance decreased [Unknown]
  - Multiple organ dysfunction syndrome [Recovered/Resolved]
  - Cerebrovascular accident [Recovered/Resolved]
  - Neuropathy peripheral [Unknown]
  - Dyspnoea exertional [Unknown]
  - Nausea [Unknown]
  - Acute kidney injury [Recovered/Resolved]
  - Diastolic hypertension [Unknown]

NARRATIVE: CASE EVENT DATE: 201807
